FAERS Safety Report 17860120 (Version 1)
Quarter: 2020Q2

REPORT INFORMATION
  Report Type: Spontaneous
  Country: US (occurrence: US)
  Receive Date: 20200604
  Receipt Date: 20200604
  Transmission Date: 20200714
  Serious: Yes (Disabling)
  Sender: FDA-Public Use
  Company Number: None

PATIENT
  Age: 54 Year
  Sex: Female
  Weight: 83.25 kg

DRUGS (14)
  1. QUETIAPINE ER 400 MG [Suspect]
     Active Substance: QUETIAPINE
     Indication: BIPOLAR II DISORDER
     Route: 048
     Dates: start: 20191101, end: 20200531
  2. ESTRADIOL. [Concomitant]
     Active Substance: ESTRADIOL
  3. QUETIAPINE. [Concomitant]
     Active Substance: QUETIAPINE
  4. ROSUVASTATIN. [Concomitant]
     Active Substance: ROSUVASTATIN
  5. PROPRANOLOL ER [Concomitant]
     Active Substance: PROPRANOLOL HYDROCHLORIDE
  6. LORAZEPAM. [Concomitant]
     Active Substance: LORAZEPAM
  7. VITAMIN D3 [Concomitant]
     Active Substance: CHOLECALCIFEROL
  8. METFORMIN [Concomitant]
     Active Substance: METFORMIN HYDROCHLORIDE
  9. FLUOXETINE [Concomitant]
     Active Substance: FLUOXETINE HYDROCHLORIDE
  10. LANSOPRAZOLE. [Concomitant]
     Active Substance: LANSOPRAZOLE
  11. KIRKLAND MATURE MULTIVITAMIN [Concomitant]
  12. LEVOTHYROXINE. [Concomitant]
     Active Substance: LEVOTHYROXINE
  13. MICRONIZED PROGESTERONE [Concomitant]
  14. GLUCOSAMINE/CHONDROITIN [Concomitant]

REACTIONS (9)
  - Anxiety [None]
  - Weight decreased [None]
  - Akathisia [None]
  - Suicidal ideation [None]
  - Depression [None]
  - Insomnia [None]
  - Suspected product quality issue [None]
  - Product substitution issue [None]
  - Restlessness [None]

NARRATIVE: CASE EVENT DATE: 20200412
